FAERS Safety Report 12669063 (Version 2)
Quarter: 2016Q4

REPORT INFORMATION
  Report Type: Spontaneous
  Country: TN (occurrence: TN)
  Receive Date: 20160819
  Receipt Date: 20161102
  Transmission Date: 20170207
  Serious: Yes (Death, Other)
  Sender: FDA-Public Use
  Company Number: TN-SUN PHARMACEUTICAL INDUSTRIES LTD-2016R1-122448

PATIENT
  Age: 50 Year
  Sex: Male

DRUGS (11)
  1. VINBLASTINE [Suspect]
     Active Substance: VINBLASTINE
     Indication: HODGKIN^S DISEASE MIXED CELLULARITY STAGE III
     Dosage: 10 MG 4 CYCLES
     Route: 065
  2. DOXORUBICIN [Suspect]
     Active Substance: DOXORUBICIN
     Indication: HODGKIN^S DISEASE MIXED CELLULARITY STAGE III
     Dosage: 25 MG/M2, 4 CYCLES
     Route: 065
  3. DOXORUBICIN [Suspect]
     Active Substance: DOXORUBICIN
     Dosage: 35 MG/M2 ON DAY 1 AND DAY 8 (8 CYCLES)
     Route: 065
  4. PREDNISONE. [Suspect]
     Active Substance: PREDNISONE
     Indication: HODGKIN^S DISEASE MIXED CELLULARITY STAGE III
     Dosage: 40 MG/M2 ON DAY 1 AND DAY 8 (8 CYCLES)
     Route: 065
  5. BLEOMYCIN [Suspect]
     Active Substance: BLEOMYCIN SULFATE
     Dosage: 15 MG 4 CYCLES
     Route: 065
  6. CYCLOPHOSPHAMIDE. [Suspect]
     Active Substance: CYCLOPHOSPHAMIDE
     Indication: HODGKIN^S DISEASE MIXED CELLULARITY STAGE III
     Dosage: 1200 MG/M2 ON DAY 1 AND DAY 8 (8 CYCLES)
     Route: 065
  7. VINCRISTINE [Suspect]
     Active Substance: VINCRISTINE
     Indication: HODGKIN^S DISEASE MIXED CELLULARITY STAGE III
     Dosage: 1.4 MG/M2 ON DAY 1 AND DAY 8 (8 CYCLES)
     Route: 065
  8. ETOPOSIDE. [Suspect]
     Active Substance: ETOPOSIDE
     Indication: HODGKIN^S DISEASE MIXED CELLULARITY STAGE III
     Dosage: 100 MG/M2 ON DAY 1 AND DAY 8 (8 CYCLES)
     Route: 065
  9. BLEOMYCIN [Suspect]
     Active Substance: BLEOMYCIN SULFATE
     Indication: HODGKIN^S DISEASE MIXED CELLULARITY STAGE III
     Dosage: 10 MG/M2 ON DAY 1 AND DAY 8 (8 CYCLES)
     Route: 065
  10. DACARBAZINE. [Suspect]
     Active Substance: DACARBAZINE
     Indication: HODGKIN^S DISEASE MIXED CELLULARITY STAGE III
     Dosage: 375 MG/M2 4 CYCLES
     Route: 065
  11. PROCARBAZINE [Suspect]
     Active Substance: PROCARBAZINE
     Indication: HODGKIN^S DISEASE MIXED CELLULARITY STAGE III
     Dosage: 100 MG ON DAY 1 AND DAY 8 (8 CYCLES)
     Route: 065

REACTIONS (2)
  - Drug ineffective [Unknown]
  - Sepsis [Fatal]
